FAERS Safety Report 18359136 (Version 1)
Quarter: 2020Q4

REPORT INFORMATION
  Report Type: Spontaneous
  Country: US (occurrence: US)
  Receive Date: 20201008
  Receipt Date: 20201008
  Transmission Date: 20210114
  Serious: Yes (Death, Other)
  Sender: FDA-Public Use
  Company Number: US-INDIVIOR US-INDV-125241-2020

PATIENT
  Age: 5 Year
  Sex: Male

DRUGS (1)
  1. BUPRENORPHINE 8 MG TABLET [Suspect]
     Active Substance: BUPRENORPHINE HYDROCHLORIDE
     Dosage: UNK
     Route: 048
     Dates: start: 20200331, end: 20200331

REACTIONS (2)
  - Toxicity to various agents [Fatal]
  - Accidental exposure to product by child [Fatal]

NARRATIVE: CASE EVENT DATE: 20200331
